FAERS Safety Report 23799007 (Version 1)
Quarter: 2024Q2

REPORT INFORMATION
  Report Type: Spontaneous
  Country: US (occurrence: None)
  Receive Date: 20240427
  Receipt Date: 20240427
  Transmission Date: 20240716
  Serious: Yes (Life-Threatening, Hospitalization)
  Sender: FDA-Public Use
  Company Number: None

PATIENT
  Age: 82 Year
  Sex: Male

DRUGS (1)
  1. DIATRIZOATE MEGLUMINE [Suspect]
     Active Substance: DIATRIZOATE MEGLUMINE
     Dates: start: 20230509, end: 20230509

REACTIONS (4)
  - Presyncope [None]
  - Cardiac procedure complication [None]
  - Coronary artery disease [None]
  - Patent ductus arteriosus [None]

NARRATIVE: CASE EVENT DATE: 20230509
